FAERS Safety Report 22610497 (Version 1)
Quarter: 2023Q2

REPORT INFORMATION
  Report Type: Spontaneous
  Country: US (occurrence: US)
  Receive Date: 20230616
  Receipt Date: 20230616
  Transmission Date: 20230722
  Serious: Yes (Other)
  Sender: FDA-Public Use
  Company Number: US-SPECGX-T202301364

PATIENT
  Age: 41 Year
  Sex: Female

DRUGS (1)
  1. BUPRENORPHINE\NALOXONE [Suspect]
     Active Substance: BUPRENORPHINE\NALOXONE
     Indication: Drug use disorder
     Dosage: UNK
     Route: 065

REACTIONS (8)
  - Non-cardiogenic pulmonary oedema [Recovered/Resolved]
  - Dyspnoea [Recovered/Resolved]
  - Substance use [Unknown]
  - Weight increased [Recovered/Resolved]
  - Tachycardia [Recovered/Resolved]
  - Enuresis [Recovered/Resolved]
  - Oedema peripheral [Recovered/Resolved]
  - Insomnia [Recovered/Resolved]
